FAERS Safety Report 4804832-7 (Version None)
Quarter: 2005Q4

REPORT INFORMATION
  Report Type: 
  Country: None (occurrence: None)
  Receive Date: 20051020
  Receipt Date: 20051014
  Transmission Date: 20060501
  Serious: Yes (Other)
  Sender: FDA-Public Use
  Company Number: PHBS2005IE15262

PATIENT
  Age: 46 Year
  Sex: Male

DRUGS (2)
  1. ATENOLOL [Suspect]
     Dosage: 50 MG, QD
  2. DIOVAN [Suspect]
     Dosage: 160 MG, UNK

REACTIONS (5)
  - PRURITUS [None]
  - PSORIASIS [None]
  - RASH [None]
  - RASH ERYTHEMATOUS [None]
  - SEBORRHOEA [None]
